FAERS Safety Report 4325038-4 (Version None)
Quarter: 2004Q1

REPORT INFORMATION
  Report Type: 
  Country: None (occurrence: None)
  Receive Date: 20040326
  Receipt Date: 20040326
  Transmission Date: 20041129
  Serious: Yes (Other)
  Sender: FDA-Public Use
  Company Number: None

PATIENT
  Age: 16 Year
  Sex: Female
  Weight: 52.1637 kg

DRUGS (1)
  1. PROZAC [Suspect]

REACTIONS (5)
  - DEPRESSION [None]
  - EUPHORIC MOOD [None]
  - FATIGUE [None]
  - FEELING JITTERY [None]
  - SUICIDAL IDEATION [None]
